FAERS Safety Report 9081859 (Version 1)
Quarter: 2013Q1

REPORT INFORMATION
  Report Type: Report from Study
  Country: US (occurrence: US)
  Receive Date: 20130130
  Receipt Date: 20130130
  Transmission Date: 20140127
  Serious: No
  Sender: FDA-Public Use
  Company Number: US-ABBOTT-12P-163-0978598-00

PATIENT
  Age: 63 Year
  Sex: Male

DRUGS (4)
  1. HUMIRA [Suspect]
     Indication: CROHN^S DISEASE
     Route: 058
     Dates: start: 201207
  2. LIPITOR [Concomitant]
     Indication: BLOOD TRIGLYCERIDES INCREASED
     Dosage: DAILY
  3. ALLOPURINOL [Concomitant]
     Indication: NEPHROLITHIASIS
     Dosage: DAILY
  4. LEXAPRO [Concomitant]
     Indication: ANXIETY
     Dosage: DAILY

REACTIONS (2)
  - Injection site pain [Recovered/Resolved]
  - Injection site pain [Recovered/Resolved]
